FAERS Safety Report 5177075-8 (Version None)
Quarter: 2006Q4

REPORT INFORMATION
  Report Type: 
  Country: None (occurrence: None)
  Receive Date: 20061207
  Receipt Date: 20061128
  Transmission Date: 20070319
  Serious: Yes (Death, Hospitalization)
  Sender: FDA-Public Use
  Company Number: HQWYE660128NOV06

PATIENT
  Age: 73 Year
  Sex: Male

DRUGS (20)
  1. CORDARONE [Suspect]
     Indication: ATRIAL FIBRILLATION
     Dosage: 300 MG BOLUS; INTRAVENOUS
     Route: 042
     Dates: start: 20060914, end: 20060914
  2. CORDARONE [Suspect]
     Indication: ATRIAL FLUTTER
     Dosage: 300 MG BOLUS; INTRAVENOUS
     Route: 042
     Dates: start: 20060914, end: 20060914
  3. CORDARONE [Suspect]
     Dosage: 900 MG CONTINUOUS INFUSION OVER 24 HOURS; INTRAVENOUS
     Route: 042
     Dates: start: 20060914, end: 20060915
  4. CORDARONE [Suspect]
     Dosage: 900 MG CONTINUOUS INFUSION OVER 24 HOURS; INTRAVENOUS
     Route: 042
     Dates: start: 20060915, end: 20060916
  5. CORDARONE [Suspect]
     Indication: ATRIAL FIBRILLATION
     Dosage: 600 MG 1X PER 1 DAY; ORAL, 200 MG 1X PER 1 DAY; ORAL
     Route: 048
     Dates: start: 20060915, end: 20060915
  6. CORDARONE [Suspect]
     Indication: ATRIAL FIBRILLATION
     Dosage: 600 MG 1X PER 1 DAY; ORAL, 200 MG 1X PER 1 DAY; ORAL
     Route: 048
     Dates: start: 20060916, end: 20060916
  7. DIFLUCAN [Suspect]
     Indication: APHTHOUS STOMATITIS
     Dosage: 50 MG 1X PER 1 DAY; ORAL
     Route: 048
     Dates: start: 20060907, end: 20060917
  8. DIFLUCAN [Suspect]
     Indication: OESOPHAGITIS
     Dosage: 50 MG 1X PER 1 DAY; ORAL
     Route: 048
     Dates: start: 20060907, end: 20060917
  9. ALLOPURINOL [Concomitant]
  10. SELIPRAN (PRAVASTATIN SODIUM) [Concomitant]
  11. SPIRICORT (PREDNISOLONE) [Concomitant]
  12. CALCIMAGON (CALCIUM CARBONATE/COLECALCIFEROL) [Concomitant]
  13. DAFALGAN (PARACETAMOL) [Concomitant]
  14. TOREM (TORASEMIDE) [Concomitant]
  15. NEBIVOLOL HCL [Concomitant]
  16. NEXIUM [Concomitant]
  17. ASPIRIN [Concomitant]
  18. SPIRIVA [Concomitant]
  19. GASTROSIL (METOCLOPRAMIDE HYDROCHLORIDE) [Concomitant]
  20. NAVOBAN (TROPISETRON HYDROCHLORIDE) [Concomitant]

REACTIONS (7)
  - CHEST PAIN [None]
  - DYSPNOEA [None]
  - GENERAL PHYSICAL HEALTH DETERIORATION [None]
  - HEPATITIS TOXIC [None]
  - REFUSAL OF TREATMENT BY PATIENT [None]
  - RENAL FAILURE ACUTE [None]
  - TACHYCARDIA [None]
